FAERS Safety Report 16783258 (Version 1)
Quarter: 2019Q3

REPORT INFORMATION
  Report Type: Spontaneous
  Country: SI (occurrence: SI)
  Receive Date: 20190907
  Receipt Date: 20190907
  Transmission Date: 20191005
  Serious: Yes (Life-Threatening, Hospitalization, Other)
  Sender: FDA-Public Use
  Company Number: SI-TEVA-2019-SI-1102613

PATIENT
  Age: 68 Year
  Sex: Male

DRUGS (5)
  1. INSULIN [Concomitant]
     Active Substance: INSULIN NOS
     Dosage: ACCORDING TO THE SCHEME
  2. LEKADOL [Concomitant]
     Active Substance: ACETAMINOPHEN
  3. LONQUEX [Concomitant]
     Active Substance: LIPEGFILGRASTIM
  4. NOLPAZA 40 MG [Concomitant]
     Dosage: 40 MG
  5. BOPACATIN 10 MG/ML [Suspect]
     Active Substance: CARBOPLATIN
     Indication: LUNG NEOPLASM MALIGNANT
     Dosage: 10 MG/ML CONCENTRATE FOR SOLUTION FOR INFUSION, 500 MG
     Route: 042
     Dates: start: 20190516, end: 20190629

REACTIONS (3)
  - Sinus bradycardia [Recovered/Resolved]
  - Fall [Recovered/Resolved]
  - Loss of consciousness [Recovered/Resolved]

NARRATIVE: CASE EVENT DATE: 20190629
